FAERS Safety Report 14542812 (Version 1)
Quarter: 2018Q1

REPORT INFORMATION
  Report Type: Spontaneous
  Country: GB (occurrence: GB)
  Receive Date: 20180216
  Receipt Date: 20180216
  Transmission Date: 20180509
  Serious: Yes (Other)
  Sender: FDA-Public Use
  Company Number: GB-OTSUKA-DJ201400167

PATIENT
  Age: 23 Year
  Sex: Male
  Weight: 107.9 kg

DRUGS (3)
  1. ABILIFY [Suspect]
     Active Substance: ARIPIPRAZOLE
     Indication: SCHIZOAFFECTIVE DISORDER
     Dosage: 5 MG, QD
     Route: 048
     Dates: start: 20130701
  2. EPILIM [Concomitant]
     Active Substance: VALPROATE SODIUM
     Indication: PRODUCT USED FOR UNKNOWN INDICATION
     Dosage: UNK
     Route: 065
  3. OLANZAPINE. [Concomitant]
     Active Substance: OLANZAPINE
     Indication: SCHIZOAFFECTIVE DISORDER
     Dosage: 20 MG, QD
     Route: 065

REACTIONS (7)
  - Condition aggravated [Not Recovered/Not Resolved]
  - Facial spasm [Not Recovered/Not Resolved]
  - Movement disorder [Not Recovered/Not Resolved]
  - Muscle twitching [Not Recovered/Not Resolved]
  - Aggression [Not Recovered/Not Resolved]
  - Dyskinesia [Not Recovered/Not Resolved]
  - Autism spectrum disorder [Not Recovered/Not Resolved]

NARRATIVE: CASE EVENT DATE: 20130927
